FAERS Safety Report 21342206 (Version 2)
Quarter: 2022Q4

REPORT INFORMATION
  Report Type: Spontaneous
  Country: US (occurrence: US)
  Receive Date: 20220916
  Receipt Date: 20221005
  Transmission Date: 20230113
  Serious: Yes (Other)
  Sender: FDA-Public Use
  Company Number: US-PFIZER INC-202201160869

PATIENT
  Age: 36 Year
  Sex: Female
  Weight: 58.06 kg

DRUGS (3)
  1. BUPIVACAINE HYDROCHLORIDE [Suspect]
     Active Substance: BUPIVACAINE HYDROCHLORIDE
     Indication: Allergy test
     Dosage: UNK
     Dates: start: 20220721
  2. ALLEGRA [Concomitant]
     Active Substance: FEXOFENADINE HYDROCHLORIDE
     Indication: Mast cell activation syndrome
     Dosage: 120 MG, 2X/DAY
  3. PEPCID [Concomitant]
     Active Substance: FAMOTIDINE
     Indication: Mast cell activation syndrome
     Dosage: 20 MG, 2X/DAY

REACTIONS (5)
  - Oral pruritus [Recovered/Resolved]
  - Mouth swelling [Recovered/Resolved]
  - Pruritus [Recovered/Resolved]
  - Rash [Recovered/Resolved]
  - Swelling [Recovered/Resolved]

NARRATIVE: CASE EVENT DATE: 20220721
